FAERS Safety Report 19942696 (Version 3)
Quarter: 2022Q1

REPORT INFORMATION
  Report Type: Report from Study
  Country: MX (occurrence: MX)
  Receive Date: 20211012
  Receipt Date: 20220206
  Transmission Date: 20220423
  Serious: Yes (Hospitalization, Other)
  Sender: FDA-Public Use
  Company Number: MX-NOVARTISPH-NVSC2021MX044883

PATIENT
  Age: 53 Year
  Sex: Female
  Weight: 76 kg

DRUGS (5)
  1. TASIGNA [Suspect]
     Active Substance: NILOTINIB
     Indication: Chronic myeloid leukaemia
     Dosage: 800 MG, QD
     Route: 048
  2. TASIGNA [Suspect]
     Active Substance: NILOTINIB
     Dosage: 400 MG, BID (IN THE MORNING AND AT NIGHT)
     Route: 048
     Dates: start: 2011
  3. TASIGNA [Suspect]
     Active Substance: NILOTINIB
     Dosage: 2 DF, BID (CAPSULES IN THE MORNING AND 2 CAPSULES AT NIGHT)
     Route: 065
  4. TASIGNA [Suspect]
     Active Substance: NILOTINIB
     Dosage: 200 MG BID (IN THE MORNING AND AT NIGHT)
     Route: 048
     Dates: start: 2011
  5. TASIGNA [Suspect]
     Active Substance: NILOTINIB
     Dosage: 800 MG
     Route: 048
     Dates: start: 2011

REACTIONS (14)
  - Arterial occlusive disease [Recovered/Resolved]
  - Post procedural infection [Recovered/Resolved]
  - Infarction [Unknown]
  - Diabetes mellitus [Not Recovered/Not Resolved]
  - Eating disorder [Unknown]
  - Dyspnoea [Unknown]
  - COVID-19 [Recovered/Resolved]
  - Influenza [Not Recovered/Not Resolved]
  - Venous occlusion [Recovered/Resolved]
  - Cough [Not Recovered/Not Resolved]
  - Blood pressure abnormal [Not Recovered/Not Resolved]
  - Hypersensitivity [Not Recovered/Not Resolved]
  - Anxiety [Not Recovered/Not Resolved]
  - Fatigue [Unknown]

NARRATIVE: CASE EVENT DATE: 20190804
